FAERS Safety Report 16355287 (Version 1)
Quarter: 2019Q2

REPORT INFORMATION
  Report Type: Spontaneous
  Country: GR (occurrence: GR)
  Receive Date: 20190525
  Receipt Date: 20190525
  Transmission Date: 20190711
  Serious: Yes (Other)
  Sender: FDA-Public Use
  Company Number: GR-009507513-1904GRC009317

PATIENT
  Age: 72 Year
  Sex: Female

DRUGS (7)
  1. FISIOTENS [Concomitant]
     Active Substance: MOXONIDINE
     Dosage: 0.4 DOSAGE FORM
  2. ALDACTONE [Concomitant]
     Active Substance: SPIRONOLACTONE
     Dosage: UNK
  3. ZOSTAVAX [Suspect]
     Active Substance: VARICELLA-ZOSTER VIRUS STRAIN OKA/MERCK LIVE ANTIGEN
     Indication: PROPHYLAXIS
     Route: 030
     Dates: start: 20190115
  4. STERILE DILUENT (WATER) [Suspect]
     Active Substance: WATER
     Dosage: 0.65 MILLILITER
     Route: 030
     Dates: start: 20190115
  5. GLUCOPHAGE [Concomitant]
     Active Substance: METFORMIN HYDROCHLORIDE
     Indication: DIABETES MELLITUS
     Dosage: UNK
  6. ATROST [Concomitant]
     Active Substance: ATORVASTATIN CALCIUM
     Dosage: UNK
  7. DOVOBET [Concomitant]
     Active Substance: BETAMETHASONE\CALCIPOTRIENE
     Dosage: UNK

REACTIONS (3)
  - Trigeminal neuralgia [Unknown]
  - Ophthalmic herpes zoster [Unknown]
  - Dry eye [Unknown]

NARRATIVE: CASE EVENT DATE: 20190414
